FAERS Safety Report 15404272 (Version 2)
Quarter: 2018Q3

REPORT INFORMATION
  Report Type: Spontaneous
  Country: JP (occurrence: JP)
  Receive Date: 20180919
  Receipt Date: 20180920
  Transmission Date: 20181010
  Serious: Yes (Death)
  Sender: FDA-Public Use
  Company Number: JP-SA-2018SA256678

PATIENT
  Sex: Male

DRUGS (4)
  1. 5?FU [FLUOROURACIL] [Concomitant]
     Active Substance: FLUOROURACIL
  2. LEVOFOLINATE YAKULT [Suspect]
     Active Substance: LEVOLEUCOVORIN CALCIUM
     Indication: PANCREATIC CARCINOMA
     Dosage: UNK UNK, QD
     Route: 041
  3. ELPLAT [Suspect]
     Active Substance: OXALIPLATIN
     Indication: PANCREATIC CARCINOMA
     Dosage: UNK UNK, QD
     Route: 041
  4. IRINOTECAN [Suspect]
     Active Substance: IRINOTECAN
     Indication: PANCREATIC CARCINOMA
     Dosage: UNK UNK, QD
     Route: 041

REACTIONS (1)
  - Cholangitis [Fatal]
